FAERS Safety Report 24131311 (Version 1)
Quarter: 2024Q3

REPORT INFORMATION
  Report Type: Spontaneous
  Country: CN (occurrence: CN)
  Receive Date: 20240724
  Receipt Date: 20240724
  Transmission Date: 20241016
  Serious: Yes (Life-Threatening, Hospitalization)
  Sender: STRIDES
  Company Number: None

PATIENT
  Age: 11 Year
  Sex: Male

DRUGS (10)
  1. METHOTREXATE [Suspect]
     Active Substance: METHOTREXATE
     Indication: Prophylaxis against graft versus host disease
     Dosage: UNK;SHORT-TERM
     Route: 065
     Dates: start: 2022, end: 2022
  2. MYCOPHENOLATE MOFETIL [Suspect]
     Active Substance: MYCOPHENOLATE MOFETIL
     Indication: Prophylaxis against graft versus host disease
     Dosage: UNK;SHORT-TERM
     Route: 065
     Dates: start: 2022, end: 2022
  3. CYCLOSPORINE [Suspect]
     Active Substance: CYCLOSPORINE
     Indication: Prophylaxis against graft versus host disease
     Dosage: UNK; SHORT-TERM
     Route: 065
     Dates: start: 2022, end: 2022
  4. METHYLPREDNISOLONE [Suspect]
     Active Substance: METHYLPREDNISOLONE
     Indication: Graft versus host disease
     Dosage: 2 MILLIGRAM/KILOGRAM, QD
     Route: 065
     Dates: start: 2022, end: 2022
  5. BUSULFAN [Suspect]
     Active Substance: BUSULFAN
     Indication: Bone marrow conditioning regimen
     Dosage: 3.2 MILLIGRAM/KILOGRAM, QD; DAY ?9 TO DAY ?7
     Route: 065
     Dates: start: 2022, end: 2022
  6. CYCLOPHOSPHAMIDE [Suspect]
     Active Substance: CYCLOPHOSPHAMIDE
     Indication: Bone marrow conditioning regimen
     Dosage: 60 MILLIGRAM/KILOGRAM, QD, DAY ?6 TO DAY ?5
     Route: 065
     Dates: start: 2022, end: 2022
  7. FLUDARABINE [Suspect]
     Active Substance: FLUDARABINE PHOSPHATE
     Indication: Bone marrow conditioning regimen
     Dosage: 30 MILLIGRAM/KILOGRAM, QD;DAY ?11 TO DAY ?7
     Route: 065
     Dates: start: 2022, end: 2022
  8. BASILIXIMAB [Suspect]
     Active Substance: BASILIXIMAB
     Indication: Graft versus host disease
     Dosage: 10 MILLIGRAM, QD; ON DAY 24 POST-TRANSPLANTATION (+1, +3, +8)
     Route: 065
     Dates: start: 2022, end: 2022
  9. ETANERCEPT [Suspect]
     Active Substance: ETANERCEPT
     Indication: Graft versus host disease
     Dosage: 12.5 MILLIGRAM; ON DAY 24 POST-TRANSPLANTATION PER 2 WEEKS
     Route: 065
     Dates: start: 2022, end: 2022
  10. LAPINE T-LYMPHOCYTE IMMUNE GLOBULIN [Suspect]
     Active Substance: LAPINE T-LYMPHOCYTE IMMUNE GLOBULIN
     Indication: Bone marrow conditioning regimen
     Dosage: 2.5 MILLIGRAM/KILOGRAM, QD; DAY ?4 TO DAY ?2
     Route: 065
     Dates: start: 2022, end: 2022

REACTIONS (6)
  - Haemophagocytic lymphohistiocytosis [Recovered/Resolved]
  - Cystitis haemorrhagic [Recovered/Resolved]
  - Adenovirus infection [Recovered/Resolved]
  - BK virus infection [Recovered/Resolved]
  - Cytomegalovirus infection [Unknown]
  - Epstein-Barr virus infection [Unknown]

NARRATIVE: CASE EVENT DATE: 20220101
